FAERS Safety Report 4409755-3 (Version None)
Quarter: 2004Q3

REPORT INFORMATION
  Report Type: 
  Country: None (occurrence: None)
  Receive Date: 20040723
  Receipt Date: 20040712
  Transmission Date: 20050211
  Serious: Yes (Hospitalization)
  Sender: FDA-Public Use
  Company Number: 04P-163-0264759-00

PATIENT
  Age: 44 Year
  Sex: Male

DRUGS (4)
  1. RITONAVIR SOFT GELATIN CAPSULES (NORVIR) (RITONAVIR) (RITONAVIR) [Suspect]
     Indication: HIV INFECTION
     Dosage: 400 MG, PER ORAL
     Route: 048
     Dates: start: 20040513
  2. FUZEON [Concomitant]
  3. ZIDOVUDINE W/LAMIVUDINE [Concomitant]
  4. TIPRANAVIR [Concomitant]

REACTIONS (17)
  - ASTHENIA [None]
  - CHEST PAIN [None]
  - CONDITION AGGRAVATED [None]
  - CYTOMEGALOVIRUS INFECTION [None]
  - CYTOMEGALOVIRUS VIRAEMIA [None]
  - DIARRHOEA [None]
  - IMMUNE RECONSTITUTION SYNDROME [None]
  - LUNG INFILTRATION [None]
  - MYCOBACTERIUM AVIUM COMPLEX INFECTION [None]
  - OESOPHAGEAL ULCER [None]
  - PANCYTOPENIA [None]
  - PNEUMONIA [None]
  - PULMONARY OEDEMA [None]
  - STAPHYLOCOCCAL INFECTION [None]
  - THERAPY NON-RESPONDER [None]
  - VIRAEMIA [None]
  - WEIGHT DECREASED [None]
